FAERS Safety Report 17722643 (Version 1)
Quarter: 2020Q2

REPORT INFORMATION
  Report Type: Spontaneous
  Country: US (occurrence: US)
  Receive Date: 20200428
  Receipt Date: 20200428
  Transmission Date: 20200714
  Serious: Yes (Other)
  Sender: FDA-Public Use
  Company Number: None

PATIENT
  Age: 74 Year
  Sex: Male

DRUGS (4)
  1. ASPIRIN 81MG [Concomitant]
     Active Substance: ASPIRIN
  2. REPATHA [Suspect]
     Active Substance: EVOLOCUMAB
     Indication: HYPERLIPIDAEMIA
     Route: 058
     Dates: start: 20200207, end: 20200403
  3. WARFARIN [Concomitant]
     Active Substance: WARFARIN
  4. FISH OIL [Concomitant]
     Active Substance: FISH OIL

REACTIONS (6)
  - Injection site pain [None]
  - Injection site swelling [None]
  - Injection site bruising [None]
  - Injection site induration [None]
  - Hyperhidrosis [None]
  - Pain [None]
